FAERS Safety Report 9469707 (Version 2)
Quarter: 2013Q3

REPORT INFORMATION
  Report Type: Spontaneous
  Country: DK (occurrence: DK)
  Receive Date: 20130822
  Receipt Date: 20130822
  Transmission Date: 20140515
  Serious: Yes (Other)
  Sender: FDA-Public Use
  Company Number: PHHY2013DK087614

PATIENT
  Age: 56 Year
  Sex: Male

DRUGS (5)
  1. ENTACAPONE [Suspect]
     Indication: PARKINSON^S DISEASE
     Dosage: 600 MG, DAILY
  2. CABERGOLINE [Suspect]
     Indication: PARKINSON^S DISEASE
     Dosage: 8 MG, DAILY
  3. ROPINIROLE [Suspect]
     Indication: PARKINSON^S DISEASE
     Dosage: 4 MG, DAILY
  4. LEVODOPA [Suspect]
     Indication: PARKINSON^S DISEASE
     Dosage: 300 MG, DAILY
  5. RASAGILINE [Suspect]
     Indication: PARKINSON^S DISEASE
     Dosage: 1 MG, DAILY

REACTIONS (3)
  - Pathological gambling [Unknown]
  - Parkinson^s disease [Unknown]
  - Disease progression [Unknown]
